FAERS Safety Report 20028786 (Version 2)
Quarter: 2021Q4

REPORT INFORMATION
  Report Type: Spontaneous
  Country: None (occurrence: US)
  Receive Date: 20211103
  Receipt Date: 20211224
  Transmission Date: 20220303
  Serious: No
  Sender: FDA-Public Use
  Company Number: US-P+L Developments of Newyork Corporation-2121391

PATIENT
  Age: 70 Year
  Sex: Female

DRUGS (1)
  1. ESOMEPRAZOLE MAGNESIUM [Suspect]
     Active Substance: ESOMEPRAZOLE MAGNESIUM
     Indication: Product used for unknown indication
     Route: 065
     Dates: end: 20210923

REACTIONS (4)
  - Product quality issue [Unknown]
  - Aptyalism [Unknown]
  - Dehydration [Not Recovered/Not Resolved]
  - Manufacturing materials issue [Unknown]
